FAERS Safety Report 6043573-8 (Version None)
Quarter: 2009Q1

REPORT INFORMATION
  Report Type: 
  Country: None (occurrence: None)
  Receive Date: 20090115
  Receipt Date: 20090115
  Transmission Date: 20090719
  Serious: Yes (Other)
  Sender: FDA-Public Use
  Company Number: None

PATIENT

DRUGS (1)
  1. EXFORGE [Suspect]
     Indication: HYPERTENSION
     Dosage: ONE TAB ONCE A DAY PO
     Route: 048
     Dates: start: 20081003, end: 20081231

REACTIONS (5)
  - DIZZINESS [None]
  - FATIGUE [None]
  - LIBIDO DECREASED [None]
  - QUALITY OF LIFE DECREASED [None]
  - RASH [None]
